FAERS Safety Report 17557510 (Version 1)
Quarter: 2020Q1

REPORT INFORMATION
  Report Type: Spontaneous
  Country: FR (occurrence: FR)
  Receive Date: 20200318
  Receipt Date: 20200318
  Transmission Date: 20200409
  Serious: Yes (Death, Other)
  Sender: FDA-Public Use
  Company Number: FR-TEVA-2020-FR-1203717

PATIENT
  Age: 87 Year
  Sex: Female

DRUGS (2)
  1. WARFARIN [Interacting]
     Active Substance: WARFARIN
     Route: 065
  2. KETOPROFEN. [Suspect]
     Active Substance: KETOPROFEN
     Dosage: FORM OF ADMINISTRATION: UNKNOWN
     Route: 065

REACTIONS (3)
  - Self-medication [Unknown]
  - Cerebral haematoma [Fatal]
  - Drug interaction [Unknown]
